FAERS Safety Report 23516597 (Version 1)
Quarter: 2024Q1

REPORT INFORMATION
  Report Type: Spontaneous
  Country: US (occurrence: None)
  Receive Date: 20240212
  Receipt Date: 20240212
  Transmission Date: 20240410
  Serious: No
  Sender: FDA-Public Use
  Company Number: None

PATIENT
  Sex: Female

DRUGS (12)
  1. AMBRISENTAN [Suspect]
     Active Substance: AMBRISENTAN
     Indication: Pulmonary hypertension
     Dosage: FREQUENCY : DAILY;?
     Route: 048
  2. GINGER [Concomitant]
     Active Substance: GINGER
  3. HERBALS\TURMERIC [Concomitant]
     Active Substance: HERBALS\TURMERIC
  4. LEMON EXTRACT [Concomitant]
     Active Substance: LEMON
  5. BIOCEL [Concomitant]
  6. CINNAMON [Concomitant]
     Active Substance: CINNAMON
  7. FUROSEMIDE [Concomitant]
     Active Substance: FUROSEMIDE
  8. ADVAIR HFA [Concomitant]
     Active Substance: FLUTICASONE PROPIONATE\SALMETEROL XINAFOATE
  9. LEVALBUTEROL TARTRATE [Concomitant]
     Active Substance: LEVALBUTEROL TARTRATE
  10. MULTIVITAMIN WOMEN [Concomitant]
  11. BUDESONIDE [Concomitant]
     Active Substance: BUDESONIDE
  12. SPIRONOLACTONE [Concomitant]
     Active Substance: SPIRONOLACTONE

REACTIONS (2)
  - Type 2 diabetes mellitus [None]
  - Product supply issue [None]
